FAERS Safety Report 5637599-3 (Version None)
Quarter: 2008Q1

REPORT INFORMATION
  Report Type: 
  Country: None (occurrence: None)
  Receive Date: 20080225
  Receipt Date: 20080214
  Transmission Date: 20080703
  Serious: Yes (Other)
  Sender: FDA-Public Use
  Company Number: JP-PFIZER INC-2008015523

PATIENT
  Age: 11 Year
  Sex: Male

DRUGS (4)
  1. AMPICILLIN AND SULBACTAM [Suspect]
     Indication: PNEUMONIA PRIMARY ATYPICAL
     Dosage: DAILY DOSE:3GRAM
     Route: 042
     Dates: start: 20071203, end: 20071204
  2. CLINDAMYCIN PHOSPHATE [Concomitant]
     Route: 042
     Dates: start: 20071203, end: 20071204
  3. CILASTATIN SODIUM W/IMIPENEM [Concomitant]
     Route: 042
     Dates: start: 20071206, end: 20071208
  4. MINOCYCLINE HYDROCHLORIDE [Concomitant]
     Route: 042
     Dates: start: 20071206, end: 20071208

REACTIONS (2)
  - LIVER DISORDER [None]
  - RASH GENERALISED [None]
